FAERS Safety Report 15504542 (Version 1)
Quarter: 2018Q4

REPORT INFORMATION
  Report Type: Spontaneous
  Country: AU (occurrence: AU)
  Receive Date: 20181016
  Receipt Date: 20181016
  Transmission Date: 20190205
  Serious: Yes (Hospitalization, Other)
  Sender: FDA-Public Use
  Company Number: AU-SA-2018SA137189

PATIENT
  Age: 61 Year
  Sex: Male

DRUGS (9)
  1. ACETYLSALICYLIC ACID [Suspect]
     Active Substance: ASPIRIN
     Dosage: 100 MG, UNK
     Route: 065
  2. NIFEDIPINE. [Suspect]
     Active Substance: NIFEDIPINE
     Dosage: 60 MG, QD
     Route: 065
  3. CLOPIDOGREL BISULFATE. [Suspect]
     Active Substance: CLOPIDOGREL BISULFATE
     Dosage: 75 MG, UNK
     Route: 065
  4. FENOFIBRATE. [Suspect]
     Active Substance: FENOFIBRATE
  5. PERINDOPRIL [Suspect]
     Active Substance: PERINDOPRIL
     Dosage: 10 MG
  6. METOPROLOL TARTRATE. [Suspect]
     Active Substance: METOPROLOL TARTRATE
     Dosage: 50 MG, BID
  7. IKOREL [Suspect]
     Active Substance: NICORANDIL
     Dosage: 20 MG, BID
     Route: 065
  8. ISOSORBIDE MONONITRATE. [Suspect]
     Active Substance: ISOSORBIDE MONONITRATE
     Dosage: 120 MG, QD
  9. EZETIMIBE. [Suspect]
     Active Substance: EZETIMIBE

REACTIONS (13)
  - Cardiac cirrhosis [Unknown]
  - Dyslipidaemia [Unknown]
  - Large intestine polyp [Unknown]
  - Kounis syndrome [Unknown]
  - Hepatomegaly [Unknown]
  - Lymphadenopathy [Unknown]
  - Bone lesion [Unknown]
  - Urticaria pigmentosa [Unknown]
  - Splenomegaly [Unknown]
  - Systemic mastocytosis [Unknown]
  - Portal hypertension [Recovered/Resolved]
  - Arteriosclerosis [Unknown]
  - Rectal haemorrhage [Unknown]

NARRATIVE: CASE EVENT DATE: 20171130
